FAERS Safety Report 21169757 (Version 1)
Quarter: 2022Q3

REPORT INFORMATION
  Report Type: Spontaneous
  Country: GB (occurrence: GB)
  Receive Date: 20220804
  Receipt Date: 20220804
  Transmission Date: 20221026
  Serious: No
  Sender: FDA-Public Use
  Company Number: None

PATIENT
  Sex: Male

DRUGS (3)
  1. PREGABALIN [Suspect]
     Active Substance: PREGABALIN
     Indication: Adverse drug reaction
     Dosage: 25 MILLIGRAM, TWICE DAILY
     Route: 048
     Dates: start: 202205
  2. PREGABALIN [Suspect]
     Active Substance: PREGABALIN
     Indication: Back pain
  3. PREGABALIN [Suspect]
     Active Substance: PREGABALIN
     Indication: Sciatica

REACTIONS (1)
  - Vision blurred [Not Recovered/Not Resolved]

NARRATIVE: CASE EVENT DATE: 20220601
